FAERS Safety Report 8991909 (Version 1)
Quarter: 2012Q4

REPORT INFORMATION
  Report Type: 
  Country: FR (occurrence: FR)
  Receive Date: 20121231
  Receipt Date: 20121231
  Transmission Date: 20130627
  Serious: Yes (Hospitalization)
  Sender: FDA-Public Use
  Company Number: FR-ROCHE-1175396

PATIENT
  Age: 76 Year
  Sex: Female
  Weight: 80 kg

DRUGS (6)
  1. ACTILYSE [Suspect]
     Indication: MYOCARDIAL INFARCTION
     Route: 042
     Dates: start: 20020707, end: 20020707
  2. LASILIX [Concomitant]
  3. LENITRAL [Concomitant]
  4. LEVOTHYROX [Concomitant]
  5. DETENSIEL [Concomitant]
  6. PERFALGAN [Concomitant]

REACTIONS (1)
  - Cerebrovascular accident [Recovering/Resolving]
